FAERS Safety Report 7222244-6 (Version None)
Quarter: 2011Q1

REPORT INFORMATION
  Report Type: 
  Country: None (occurrence: None)
  Receive Date: 20110112
  Receipt Date: 20110105
  Transmission Date: 20110831
  Serious: Yes (Hospitalization, Other)
  Sender: FDA-Public Use
  Company Number: FR-TEVA-262285USA

PATIENT
  Sex: Male

DRUGS (1)
  1. PIMOZIDE TABLETS [Suspect]
     Indication: PRODUCT USED FOR UNKNOWN INDICATION
     Route: 048
     Dates: start: 20101018, end: 20101018

REACTIONS (3)
  - ACCIDENTAL OVERDOSE [None]
  - ELECTROCARDIOGRAM QT PROLONGED [None]
  - DRUG DISPENSING ERROR [None]
